FAERS Safety Report 5639971-4 (Version None)
Quarter: 2008Q1

REPORT INFORMATION
  Report Type: 
  Country: None (occurrence: None)
  Receive Date: 20080225
  Receipt Date: 20080212
  Transmission Date: 20080703
  Serious: Yes (Other)
  Sender: FDA-Public Use
  Company Number: 2008-01323

PATIENT
  Age: 15 Year
  Sex: Female

DRUGS (3)
  1. ETOPOSIDE [Suspect]
     Indication: CHEMOTHERAPY
     Dosage: ONE CYCLE
  2. CISPLATIN [Suspect]
     Indication: CHEMOTHERAPY
  3. BLEOMYCIN SULFATE [Suspect]
     Indication: CHEMOTHERAPY

REACTIONS (1)
  - CEREBRAL VENOUS THROMBOSIS [None]
